FAERS Safety Report 6390665-X (Version None)
Quarter: 2009Q4

REPORT INFORMATION
  Report Type: 
  Country: None (occurrence: None)
  Receive Date: 20091006
  Receipt Date: 20090925
  Transmission Date: 20100525
  Serious: Yes (Hospitalization, Other)
  Sender: FDA-Public Use
  Company Number: CA-ELI_LILLY_AND_COMPANY-CA200810001644

PATIENT
  Age: 51 Year
  Sex: Female

DRUGS (7)
  1. FORTEO [Suspect]
     Indication: OSTEOPOROSIS
     Dosage: 20 UG, DAILY (1/D)
     Route: 058
     Dates: start: 20080226, end: 20080826
  2. FORTEO [Suspect]
     Dosage: 20 UG, DAILY (1/D)
     Route: 058
     Dates: start: 20080901
  3. ARAVA [Concomitant]
  4. CELEBREX [Concomitant]
  5. DIOVAN [Concomitant]
  6. NORVASC [Concomitant]
  7. CALCIUM W/VITAMIN D NOS [Concomitant]

REACTIONS (7)
  - IMPAIRED HEALING [None]
  - INVESTIGATION ABNORMAL [None]
  - LIMB OPERATION [None]
  - PULMONARY EMBOLISM [None]
  - PULMONARY MASS [None]
  - SURGERY [None]
  - WHITE BLOOD CELL COUNT INCREASED [None]
